FAERS Safety Report 19034541 (Version 2)
Quarter: 2021Q1

REPORT INFORMATION
  Report Type: Spontaneous
  Country: TR (occurrence: TR)
  Receive Date: 20210319
  Receipt Date: 20210325
  Transmission Date: 20210420
  Serious: Yes (Other)
  Sender: FDA-Public Use
  Company Number: TR-GILEAD-2021-0522008

PATIENT
  Age: 50 Year
  Sex: Female

DRUGS (6)
  1. OXYGEN. [Concomitant]
     Active Substance: OXYGEN
     Dosage: 2 L
     Route: 045
     Dates: start: 202009, end: 202009
  2. BIKTARVY [Suspect]
     Active Substance: BICTEGRAVIR SODIUM\EMTRICITABINE\TENOFOVIR ALAFENAMIDE FUMARATE
     Indication: HIV INFECTION
     Dosage: 1 DOSAGE FORM, QD
     Route: 065
     Dates: start: 20200923
  3. TRIMETHOPRIM SULFAMETHOXAZOLE [Concomitant]
     Active Substance: SULFAMETHOXAZOLE\TRIMETHOPRIM
     Dosage: UNK
     Dates: start: 202009
  4. OXYGEN. [Concomitant]
     Active Substance: OXYGEN
     Dosage: 4 L
     Route: 045
     Dates: start: 202009, end: 202009
  5. AZITHROMYCIN ANHYDROUS. [Concomitant]
     Active Substance: AZITHROMYCIN ANHYDROUS
     Dosage: UNK
     Dates: start: 202009, end: 20210205
  6. FLUCONAZOLE. [Concomitant]
     Active Substance: FLUCONAZOLE
     Dosage: UNK
     Dates: start: 202009

REACTIONS (1)
  - Opportunistic infection [Unknown]
